FAERS Safety Report 10840282 (Version 1)
Quarter: 2015Q1

REPORT INFORMATION
  Report Type: Report from Study
  Country: US (occurrence: US)
  Receive Date: 20150220
  Receipt Date: 20150220
  Transmission Date: 20150721
  Serious: No
  Sender: FDA-Public Use
  Company Number: US-ABBVIE-14P-163-1236308-00

PATIENT
  Sex: Female
  Weight: 57.2 kg

DRUGS (9)
  1. HUMIRA [Suspect]
     Active Substance: ADALIMUMAB
     Dosage: TWO WEEKS AFETR 160 MG DOSE, ONE DOSE
     Route: 065
     Dates: start: 2013, end: 2013
  2. CODEINE [Suspect]
     Active Substance: CODEINE
     Indication: GINGIVAL PAIN
     Dosage: ONE DOSE
     Route: 065
     Dates: start: 201403, end: 201403
  3. HUMIRA [Suspect]
     Active Substance: ADALIMUMAB
     Dosage: FOUR WEEKS AFTER 160 MG DOSE
     Route: 065
     Dates: start: 2013, end: 201405
  4. MULTIVITAMIN WITH MINERALS [Concomitant]
     Active Substance: MINERALS\VITAMINS
     Indication: VITAMIN SUPPLEMENTATION
  5. CEFALEXIN [Concomitant]
     Active Substance: CEPHALEXIN
     Indication: DENTAL CARE
     Dates: start: 201403, end: 201403
  6. LEVOTHYROXINE [Concomitant]
     Active Substance: LEVOTHYROXINE
     Indication: HYPOTHYROIDISM
  7. RESTORIL [Concomitant]
     Active Substance: TEMAZEPAM
     Indication: INSOMNIA
  8. HUMIRA [Suspect]
     Active Substance: ADALIMUMAB
     Indication: CROHN^S DISEASE
     Dosage: ONE DOSE
     Route: 065
     Dates: end: 2013
  9. MULTIVITAMIN WITH MINERALS [Concomitant]
     Active Substance: MINERALS\VITAMINS
     Indication: MINERAL SUPPLEMENTATION

REACTIONS (12)
  - Nasal congestion [Not Recovered/Not Resolved]
  - Erythema [Not Recovered/Not Resolved]
  - Gingival pain [Recovered/Resolved]
  - Hypertension [Recovered/Resolved]
  - Psoriasis [Recovering/Resolving]
  - Epistaxis [Not Recovered/Not Resolved]
  - Pruritus [Not Recovered/Not Resolved]
  - Skin ulcer [Not Recovered/Not Resolved]
  - Nasal mucosal discolouration [Not Recovered/Not Resolved]
  - Rash pustular [Not Recovered/Not Resolved]
  - Vomiting [Recovered/Resolved]
  - Headache [Recovered/Resolved]

NARRATIVE: CASE EVENT DATE: 2014
